FAERS Safety Report 4949550-X (Version None)
Quarter: 2006Q1

REPORT INFORMATION
  Report Type: 
  Country: None (occurrence: None)
  Receive Date: 20060316
  Receipt Date: 20060308
  Transmission Date: 20060701
  Serious: Yes (Other)
  Sender: FDA-Public Use
  Company Number: 2006004438

PATIENT
  Sex: Female
  Weight: 54.4316 kg

DRUGS (4)
  1. NATURAL CITRUS LISTERINE (MENTHOL, METHYL SALICYLATE, EUCALYPTOL, THYM [Suspect]
     Indication: PERIODONTAL DISEASE
     Dosage: DILUTED TBSP 2X DAILY MORNING/NIGHT, ORAL
     Route: 048
     Dates: end: 20060116
  2. COLESTIPOL HYDROCHLORIDE (COLESTIPOL HYDROCHLORIDE) [Concomitant]
  3. STARLIX [Concomitant]
  4. TAMOXIFEN CITRATE [Concomitant]

REACTIONS (3)
  - BREAST CANCER FEMALE [None]
  - GINGIVITIS [None]
  - SNEEZING [None]
